FAERS Safety Report 6465960-6 (Version None)
Quarter: 2009Q4

REPORT INFORMATION
  Report Type: 
  Country: None (occurrence: None)
  Receive Date: 20091202
  Receipt Date: 20091120
  Transmission Date: 20100525
  Serious: Yes (Other)
  Sender: FDA-Public Use
  Company Number: US-RB-026070-09

PATIENT
  Sex: Male

DRUGS (1)
  1. MUCINEX [Suspect]
     Route: 048
     Dates: start: 20091117

REACTIONS (3)
  - CHEST PAIN [None]
  - MUSCULOSKELETAL PAIN [None]
  - PAIN IN EXTREMITY [None]
